FAERS Safety Report 11594058 (Version 7)
Quarter: 2016Q3

REPORT INFORMATION
  Report Type: Report from Study
  Country: CA (occurrence: CA)
  Receive Date: 20151005
  Receipt Date: 20160928
  Transmission Date: 20161109
  Serious: Yes (Other)
  Sender: FDA-Public Use
  Company Number: PHHY2013CA110326

PATIENT
  Age: 66 Year
  Sex: Male

DRUGS (5)
  1. AFINITOR [Suspect]
     Active Substance: EVEROLIMUS
     Indication: PANCREATIC NEUROENDOCRINE TUMOUR
     Dosage: 10 MG, QD (ONCE DAILY)
     Route: 048
     Dates: start: 201311
  2. SANDOSTATIN LAR DEPOT [Suspect]
     Active Substance: OCTREOTIDE ACETATE
     Dosage: 30 MG, QMO (ONCE A MONTH)
     Route: 030
     Dates: start: 20150730, end: 20150925
  3. BISOPROLOL [Concomitant]
     Active Substance: BISOPROLOL
     Indication: PRODUCT USED FOR UNKNOWN INDICATION
     Route: 065
  4. SANDOSTATIN LAR DEPOT [Suspect]
     Active Substance: OCTREOTIDE ACETATE
     Indication: PANCREATIC NEUROENDOCRINE TUMOUR
     Dosage: 30 MG, QMO (EVERY 4 WEEKS)
     Route: 030
     Dates: start: 20130917, end: 20150702
  5. SANDOSTATIN LAR DEPOT [Suspect]
     Active Substance: OCTREOTIDE ACETATE
     Dosage: 40 MG, QMO (ONCE A MONTH)
     Route: 030
     Dates: start: 20151028

REACTIONS (19)
  - Metastases to liver [Unknown]
  - Haemangioma of bone [Unknown]
  - Blood pressure systolic increased [Unknown]
  - Malignant neoplasm progression [Unknown]
  - Hydrocele [Unknown]
  - Ascites [Unknown]
  - Injection site mass [Unknown]
  - Hepatic lesion [Unknown]
  - Vein disorder [Unknown]
  - Gastrointestinal wall thickening [Unknown]
  - Trigger finger [Unknown]
  - Blood pressure increased [Unknown]
  - Venous pressure increased [Unknown]
  - Heart rate decreased [Unknown]
  - Gait disturbance [Unknown]
  - Diarrhoea [Unknown]
  - Bile duct obstruction [Unknown]
  - Metastases to peritoneum [Unknown]
  - Biliary dilatation [Unknown]

NARRATIVE: CASE EVENT DATE: 20150507
